FAERS Safety Report 8347095-0 (Version None)
Quarter: 2012Q2

REPORT INFORMATION
  Report Type: 
  Country: None (occurrence: None)
  Receive Date: 20120509
  Receipt Date: 20120504
  Transmission Date: 20120825
  Serious: Yes (Hospitalization)
  Sender: FDA-Public Use
  Company Number: DE-ABBOTT-12P-062-0932622-00

PATIENT
  Sex: Female

DRUGS (2)
  1. HUMIRA [Suspect]
     Indication: PSORIASIS
     Route: 058
     Dates: start: 20090101
  2. METHOTREXATE [Concomitant]
     Indication: PSORIASIS
     Dates: start: 20120401

REACTIONS (3)
  - PSORIASIS [None]
  - GAIT DISTURBANCE [None]
  - DRUG EFFECT DECREASED [None]
